FAERS Safety Report 21032169 (Version 1)
Quarter: 2022Q3

REPORT INFORMATION
  Report Type: Report from Study
  Country: US (occurrence: US)
  Receive Date: 20220701
  Receipt Date: 20220701
  Transmission Date: 20221027
  Serious: Yes (Hospitalization, Other)
  Sender: FDA-Public Use
  Company Number: US-AMGEN-USACT2022108701

PATIENT
  Age: 15 Year
  Sex: Male
  Weight: 124.8 kg

DRUGS (8)
  1. BLINATUMOMAB [Suspect]
     Active Substance: BLINATUMOMAB
     Indication: B precursor type acute leukaemia
     Dosage: BLINATUMOMAB INFUSION PAUSED AT 19:34. (BEFORE PAUSE: 10. 5 MCG)
     Route: 042
     Dates: start: 20220428, end: 20220428
  2. BLINATUMOMAB [Suspect]
     Active Substance: BLINATUMOMAB
     Dosage: BLINATUMOMAB INFUSION RESTARTED AT HALF RATE AT 23:20. (12 HR AT HALF RATE POST-EVENT: 2.25 MCG)
     Route: 042
     Dates: start: 20220429
  3. BLINATUMOMAB [Suspect]
     Active Substance: BLINATUMOMAB
     Dosage: BLINATUMOMAB INFUSION INCREASED TO FULL RATE AT 10: 5 3 (APPROX. 36 HR AT FULL RATE POSTEVENT:13.5 M
     Route: 042
     Dates: start: 20220430
  4. DEXAMETHASONE [Suspect]
     Active Substance: DEXAMETHASONE
     Indication: B precursor type acute leukaemia
     Dosage: UNK
     Route: 065
     Dates: start: 202007, end: 202204
  5. DEXAMETHASONE [Suspect]
     Active Substance: DEXAMETHASONE
     Dosage: TOTAL DOSE ADMINISTERED: 12 MILLIGRAM
     Route: 065
     Dates: start: 20220428
  6. METHOTREXATE [Suspect]
     Active Substance: METHOTREXATE
     Indication: B precursor type acute leukaemia
     Dosage: UNK
     Route: 065
     Dates: start: 202005, end: 202006
  7. METHOTREXATE [Suspect]
     Active Substance: METHOTREXATE
     Dosage: UNK
     Route: 065
     Dates: start: 202007, end: 202204
  8. METHOTREXATE [Suspect]
     Active Substance: METHOTREXATE
     Dosage: TOTAL DOSE ADMINISTERED: 15 MILLIGRAM
     Route: 037
     Dates: start: 20220422

REACTIONS (4)
  - Flank pain [Recovered/Resolved]
  - Hypotension [Recovered/Resolved]
  - Confusional state [Recovered/Resolved]
  - Pyrexia [Recovered/Resolved]

NARRATIVE: CASE EVENT DATE: 20220429
